FAERS Safety Report 6124882-0 (Version None)
Quarter: 2009Q1

REPORT INFORMATION
  Report Type: 
  Country: None (occurrence: None)
  Receive Date: 20090319
  Receipt Date: 20090309
  Transmission Date: 20090719
  Serious: No
  Sender: FDA-Public Use
  Company Number: DE-ABBOTT-08P-062-0494339-00

PATIENT
  Sex: Female
  Weight: 70 kg

DRUGS (4)
  1. HUMIRA [Suspect]
     Indication: RHEUMATOID ARTHRITIS
     Dates: start: 20080616, end: 20081116
  2. HUMIRA [Suspect]
     Dates: start: 20081122
  3. METHOTREXATE SODIUM [Concomitant]
     Indication: RHEUMATOID ARTHRITIS
     Dosage: EVERY EIGHT DAYS
  4. PREDNISOLONE [Concomitant]
     Indication: RHEUMATOID ARTHRITIS
     Dosage: FIVE MILLIGRAMS OPD

REACTIONS (2)
  - DEAFNESS [None]
  - FACIAL PARESIS [None]
